FAERS Safety Report 5235717-2 (Version None)
Quarter: 2007Q1

REPORT INFORMATION
  Report Type: 
  Country: None (occurrence: None)
  Receive Date: 20061208
  Receipt Date: 20060615
  Transmission Date: 20070707
  Serious: Yes (Other)
  Sender: FDA-Public Use
  Company Number: 2006UW12822

PATIENT
  Age: 64 Year
  Sex: Male
  Weight: 129.27 kg

DRUGS (8)
  1. CRESTOR [Suspect]
     Indication: BLOOD CHOLESTEROL INCREASED
     Dosage: 20 MG PO
     Route: 048
  2. K-DUR 10 [Concomitant]
  3. AVAPRO [Concomitant]
  4. ZETIA [Concomitant]
  5. FUROSEMIDE [Concomitant]
  6. VITAMN C [Concomitant]
  7. VITAMIN CAP [Concomitant]
  8. TRIGLYDE [Concomitant]

REACTIONS (3)
  - BALANCE DISORDER [None]
  - CRYING [None]
  - SPEECH DISORDER [None]
